FAERS Safety Report 8660820 (Version 5)
Quarter: 2013Q3

REPORT INFORMATION
  Report Type: Spontaneous
  Country: US (occurrence: US)
  Receive Date: 20120711
  Receipt Date: 20130905
  Transmission Date: 20140515
  Serious: Yes (Hospitalization, Disabling, Other)
  Sender: FDA-Public Use
  Company Number: US-009507513-1207USA001025

PATIENT
  Sex: Female
  Weight: 61.68 kg

DRUGS (3)
  1. FOSAMAX [Suspect]
     Indication: OSTEOPOROSIS
     Dosage: 35 MG, QW
     Route: 048
     Dates: end: 20020618
  2. FOSAMAX [Suspect]
     Dosage: 70 MG, QW
     Route: 048
     Dates: start: 20020618, end: 200909
  3. VITAMINS (UNSPECIFIED) [Concomitant]
     Indication: PRODUCT USED FOR UNKNOWN INDICATION

REACTIONS (31)
  - Femur fracture [Recovered/Resolved]
  - Intramedullary rod insertion [Recovered/Resolved]
  - Breast cancer stage I [Recovering/Resolving]
  - Dehydration [Recovering/Resolving]
  - Hypotension [Recovering/Resolving]
  - Low turnover osteopathy [Unknown]
  - Pneumonia [Unknown]
  - Hysterectomy [Unknown]
  - Dizziness [Recovering/Resolving]
  - Adverse event [Unknown]
  - Dental implantation [Unknown]
  - Tooth disorder [Unknown]
  - Tooth disorder [Unknown]
  - Stress [Unknown]
  - Paraesthesia [Unknown]
  - Intervertebral disc protrusion [Unknown]
  - Large intestine polyp [Recovering/Resolving]
  - Osteoarthritis [Unknown]
  - Intervertebral disc disorder [Unknown]
  - Lymphoedema [Unknown]
  - Osteopenia [Unknown]
  - Sinusitis [Unknown]
  - Impaired healing [Unknown]
  - Weight increased [Unknown]
  - Hypertension [Unknown]
  - Hypoaesthesia [Unknown]
  - Hot flush [Recovering/Resolving]
  - Back pain [Unknown]
  - Pain in extremity [Unknown]
  - Nausea [Recovered/Resolved]
  - Gastrooesophageal reflux disease [Unknown]
